FAERS Safety Report 6264232-2 (Version None)
Quarter: 2009Q3

REPORT INFORMATION
  Report Type: 
  Country: None (occurrence: None)
  Receive Date: 20090708
  Receipt Date: 20090708
  Transmission Date: 20100115
  Serious: Yes (Other)
  Sender: FDA-Public Use
  Company Number: None

PATIENT
  Age: 63 Year
  Sex: Male
  Weight: 109.3169 kg

DRUGS (2)
  1. ZICAM NO-DRIP NASAL GEL EXTREME CONGESTION RELIEF ZICAM LLC PHOENIX, A [Suspect]
     Indication: HYPERSENSITIVITY
     Dosage: 1 SPRAY PUMP INTO EACH NOSTRIL DAILY NASAL
     Route: 045
     Dates: start: 20080815, end: 20080930
  2. ZICAM NO-DRIP NASAL GEL EXTREME CONGESTION RELIEF ZICAM LLC PHOENIX, A [Suspect]
     Indication: NASOPHARYNGITIS
     Dosage: 1 SPRAY PUMP INTO EACH NOSTRIL DAILY NASAL
     Route: 045
     Dates: start: 20080815, end: 20080930

REACTIONS (2)
  - AGEUSIA [None]
  - ANOSMIA [None]
